FAERS Safety Report 4907060-X (Version None)
Quarter: 2006Q1

REPORT INFORMATION
  Report Type: 
  Country: None (occurrence: None)
  Receive Date: 20060207
  Receipt Date: 20060116
  Transmission Date: 20060701
  Serious: Yes (Hospitalization, Other)
  Sender: FDA-Public Use
  Company Number: US_011279172

PATIENT
  Age: 58 Year
  Sex: Male
  Weight: 77.7 kg

DRUGS (9)
  1. HUMULIN L [Suspect]
     Indication: DIABETES MELLITUS
     Dosage: 30 U, EACH EVENING, SUBCUTANEOUS
     Route: 058
     Dates: start: 20020711, end: 20051225
  2. HUMULIN N [Suspect]
     Dosage: 40 U, 2/D, SUBCUTANEOUS
     Route: 058
     Dates: end: 20040101
  3. HUMALOG [Suspect]
     Indication: DIABETES MELLITUS
     Dosage: 20 U, DAILY (1/D), SUBCUTANEOUS
     Route: 058
     Dates: start: 19990101
  4. HUMULIN R [Suspect]
     Dosage: 25 U, DAILY (1/D), SUBCUTANEOUS
     Route: 058
     Dates: start: 19860101
  5. ILETIN [Suspect]
     Indication: DIABETES MELLITUS
     Dosage: SUBCUTANEOUS
     Route: 058
     Dates: start: 19810101
  6. DARVOCET [Concomitant]
  7. LOTENSIN HCT [Concomitant]
  8. NORVASC [Concomitant]
  9. LANTUS [Concomitant]

REACTIONS (11)
  - BLINDNESS UNILATERAL [None]
  - BLOOD GLUCOSE INCREASED [None]
  - IATROGENIC INJURY [None]
  - INCORRECT DRUG DOSAGE FORM ADMINISTERED [None]
  - MEDICATION ERROR [None]
  - NECK INJURY [None]
  - NECK PAIN [None]
  - OPTIC NERVE INJURY [None]
  - ROAD TRAFFIC ACCIDENT [None]
  - SCLERODERMA [None]
  - VISUAL ACUITY REDUCED [None]
